FAERS Safety Report 8075351-2 (Version None)
Quarter: 2012Q1

REPORT INFORMATION
  Report Type: 
  Country: None (occurrence: None)
  Receive Date: 20120127
  Receipt Date: 20120119
  Transmission Date: 20120608
  Serious: Yes (Hospitalization)
  Sender: FDA-Public Use
  Company Number: US-BAYER-2011-073476

PATIENT
  Age: 19 Year
  Sex: Female
  Weight: 136.5 kg

DRUGS (12)
  1. FLONASE [Concomitant]
     Dosage: UNK
     Dates: start: 20090901
  2. CITALOPRAM HYDROBROMIDE [Concomitant]
     Dosage: 40 MG, QD
  3. WELLBUTRIN [Concomitant]
  4. ALBUTEROL SULFATE [Concomitant]
     Dosage: UNK
     Dates: start: 20090901
  5. YASMIN [Suspect]
     Dosage: UNK
     Dates: start: 20090101
  6. UNCODEABLE ^UNCLASSIFIABLE^ [Concomitant]
     Dosage: UNK
     Dates: start: 20090908
  7. ACETYLSALICYLIC ACID SRT [Concomitant]
  8. NORCO [Concomitant]
     Dosage: UNK
     Dates: start: 20090908
  9. NAPROSYN [Concomitant]
     Dosage: UNK
     Dates: start: 20090908
  10. ZOLOFT [Concomitant]
     Dosage: 50 MG, QD
  11. LORATADINE [Concomitant]
     Dosage: UNK
     Dates: start: 20090901
  12. TORADOL [Concomitant]

REACTIONS (2)
  - PULMONARY EMBOLISM [None]
  - PAIN [None]
